FAERS Safety Report 6905125-4 (Version None)
Quarter: 2010Q3

REPORT INFORMATION
  Report Type: 
  Country: None (occurrence: None)
  Receive Date: 20100804
  Receipt Date: 20091009
  Transmission Date: 20110219
  Serious: No
  Sender: FDA-Public Use
  Company Number: US-PFIZER INC-2009224070

PATIENT
  Sex: Female
  Weight: 72.562 kg

DRUGS (4)
  1. LYRICA [Suspect]
     Indication: CONVULSION
     Dosage: 150 MG, 2X/DAY
     Route: 048
     Dates: start: 20090401
  2. CYMBALTA [Concomitant]
     Dosage: UNK
  3. LEXAPRO [Concomitant]
     Dosage: UNK
  4. XANAX [Concomitant]
     Dosage: UNK

REACTIONS (1)
  - WEIGHT INCREASED [None]
